FAERS Safety Report 7818318-9 (Version None)
Quarter: 2011Q4

REPORT INFORMATION
  Report Type: 
  Country: None (occurrence: None)
  Receive Date: 20111017
  Receipt Date: 20111011
  Transmission Date: 20120403
  Serious: No
  Sender: FDA-Public Use
  Company Number: US-PFIZER INC-2011201817

PATIENT
  Sex: Female
  Weight: 58.957 kg

DRUGS (3)
  1. CHANTIX [Suspect]
     Dosage: 1 MG, 2X/DAY
     Route: 048
     Dates: start: 20110101, end: 20110601
  2. CHANTIX [Suspect]
     Indication: SMOKING CESSATION THERAPY
     Dosage: 0.5 MG, 1X/DAY
     Route: 048
     Dates: start: 20110404, end: 20110101
  3. METHADONE [Concomitant]
     Indication: GAIT DISTURBANCE
     Dosage: 10 MG, DAILY

REACTIONS (7)
  - NAUSEA [None]
  - VOMITING [None]
  - DIZZINESS [None]
  - DRUG INTOLERANCE [None]
  - ABDOMINAL PAIN UPPER [None]
  - MALAISE [None]
  - COLD SWEAT [None]
